FAERS Safety Report 4739116-9 (Version None)
Quarter: 2005Q3

REPORT INFORMATION
  Report Type: 
  Country: None (occurrence: None)
  Receive Date: 20050810
  Receipt Date: 20050419
  Transmission Date: 20060218
  Serious: No
  Sender: FDA-Public Use
  Company Number: US-GLAXOSMITHKLINE-A0554820A

PATIENT
  Sex: Female

DRUGS (6)
  1. PAXIL CR [Suspect]
     Indication: PANIC DISORDER
     Dosage: 25MG PER DAY
     Route: 048
     Dates: end: 20050301
  2. TRANSENE [Concomitant]
  3. ZANTAC [Concomitant]
  4. FOLIC ACID [Concomitant]
  5. STOOL SOFTENER [Concomitant]
  6. CITRUCEL [Concomitant]

REACTIONS (2)
  - DRUG INEFFECTIVE [None]
  - TINNITUS [None]
